FAERS Safety Report 14373692 (Version 1)
Quarter: 2018Q1

REPORT INFORMATION
  Report Type: Spontaneous
  Country: TW (occurrence: TW)
  Receive Date: 20180110
  Receipt Date: 20180110
  Transmission Date: 20180509
  Serious: Yes (Death, Hospitalization)
  Sender: FDA-Public Use
  Company Number: TW-AMGEN-TWNSP2016072961

PATIENT
  Age: 52 Year
  Sex: Male

DRUGS (3)
  1. ENBREL [Suspect]
     Active Substance: ETANERCEPT
     Indication: ANKYLOSING SPONDYLITIS
     Dosage: 25 MG, 2X/WEEK
     Route: 058
     Dates: start: 201207
  2. ENBREL [Suspect]
     Active Substance: ETANERCEPT
     Dosage: 50 MG, ONCE EVERY 10-14 DAYS
     Route: 065
     Dates: start: 201609
  3. ENBREL [Suspect]
     Active Substance: ETANERCEPT
     Dosage: 50 MG, EVERY 10 DAYS
     Route: 058
     Dates: start: 201410

REACTIONS (6)
  - Cardiac discomfort [Recovered/Resolved]
  - Blood pressure decreased [Fatal]
  - Oxygen saturation decreased [Fatal]
  - Cough [Unknown]
  - Pulmonary oedema [Unknown]
  - Dyspnoea [Unknown]

NARRATIVE: CASE EVENT DATE: 201604
